FAERS Safety Report 4274922-9 (Version None)
Quarter: 2004Q1

REPORT INFORMATION
  Report Type: 
  Country: None (occurrence: None)
  Receive Date: 20040120
  Receipt Date: 20040114
  Transmission Date: 20041129
  Serious: Yes (Hospitalization)
  Sender: FDA-Public Use
  Company Number: WAES 0401GBR00106

PATIENT
  Age: 69 Year
  Sex: Female
  Weight: 76 kg

DRUGS (5)
  1. ASPIRIN [Concomitant]
     Route: 048
  2. ZETIA [Suspect]
     Indication: HYPERLIPIDAEMIA
     Route: 048
     Dates: start: 20030919, end: 20040101
  3. INDAPAMIDE [Concomitant]
     Route: 048
  4. METFORMIN [Concomitant]
     Route: 048
  5. RAMIPRIL [Concomitant]
     Route: 048

REACTIONS (1)
  - BLOOD CREATINE PHOSPHOKINASE INCREASED [None]
